FAERS Safety Report 17193999 (Version 2)
Quarter: 2020Q1

REPORT INFORMATION
  Report Type: Report from Study
  Country: None (occurrence: US)
  Receive Date: 20191223
  Receipt Date: 20200216
  Transmission Date: 20200409
  Serious: Yes (Hospitalization, Other)
  Sender: FDA-Public Use
  Company Number: US-ABBVIE-19K-163-3195504-00

PATIENT
  Age: 65 Year
  Sex: Female
  Weight: 83.99 kg

DRUGS (8)
  1. PREDNISONE. [Concomitant]
     Active Substance: PREDNISONE
     Indication: RHEUMATOID ARTHRITIS
  2. TRAMADOL + ACETAMINOFEN [Concomitant]
     Active Substance: ACETAMINOPHEN\TRAMADOL
     Indication: RHEUMATOID ARTHRITIS
  3. HUMIRA [Suspect]
     Active Substance: ADALIMUMAB
     Indication: RHEUMATOID ARTHRITIS
     Route: 058
     Dates: start: 2012, end: 20191023
  4. CYCLOBENZAPRINE. [Concomitant]
     Active Substance: CYCLOBENZAPRINE
     Indication: RHEUMATOID ARTHRITIS
  5. GABAPENTIN. [Concomitant]
     Active Substance: GABAPENTIN
     Indication: RHEUMATOID ARTHRITIS
  6. MYRBETRIQ [Concomitant]
     Active Substance: MIRABEGRON
     Indication: URINARY INCONTINENCE
  7. SAVELLA [Concomitant]
     Active Substance: MILNACIPRAN HYDROCHLORIDE
     Indication: FIBROMYALGIA
  8. LOSARTAN. [Concomitant]
     Active Substance: LOSARTAN
     Indication: HYPERTENSION

REACTIONS (7)
  - Nephrolithiasis [Not Recovered/Not Resolved]
  - Kidney infection [Not Recovered/Not Resolved]
  - Immunodeficiency [Unknown]
  - Osteoporosis [Not Recovered/Not Resolved]
  - Bladder prolapse [Recovering/Resolving]
  - Escherichia sepsis [Not Recovered/Not Resolved]
  - Kidney infection [Not Recovered/Not Resolved]

NARRATIVE: CASE EVENT DATE: 2019
